FAERS Safety Report 4554806-9 (Version None)
Quarter: 2005Q1

REPORT INFORMATION
  Report Type: 
  Country: None (occurrence: None)
  Receive Date: 20050114
  Receipt Date: 20030714
  Transmission Date: 20050727
  Serious: Yes (Hospitalization, Congenital Anomaly)
  Sender: FDA-Public Use
  Company Number: GXKR2003GB00451

PATIENT
  Sex: Female
  Weight: 2.6 kg

DRUGS (2)
  1. LORAZEPAM [Suspect]
     Dosage: 6 MG, TRANSPLACENTAL
     Route: 064
  2. SEROQUEL [Suspect]
     Dosage: 600 MG/DAY, TRANSPLACENTAL
     Route: 064

REACTIONS (9)
  - AGITATION NEONATAL [None]
  - CAESAREAN SECTION [None]
  - DRUG EXPOSURE DURING PREGNANCY [None]
  - DRUG WITHDRAWAL SYNDROME [None]
  - FEEDING PROBLEM IN NEWBORN [None]
  - HYPERTONIA [None]
  - INTERCOSTAL RETRACTION [None]
  - NASAL FLARING [None]
  - PYREXIA [None]
